FAERS Safety Report 5096901-4 (Version None)
Quarter: 2006Q3

REPORT INFORMATION
  Report Type: 
  Country: None (occurrence: None)
  Receive Date: 20060831
  Receipt Date: 20060831
  Transmission Date: 20061208
  Serious: Yes (Other)
  Sender: FDA-Public Use
  Company Number: None

PATIENT
  Age: 29 Year
  Sex: Male
  Weight: 63.5036 kg

DRUGS (2)
  1. AMOXICILLIN [Suspect]
     Indication: BACTERIAL INFECTION
     Dosage: 875 MG 2X/DAY PO
     Route: 048
     Dates: start: 20060825, end: 20060829
  2. AMOXICILLIN [Suspect]
     Indication: PHARYNGITIS
     Dosage: 875 MG 2X/DAY PO
     Route: 048
     Dates: start: 20060825, end: 20060829

REACTIONS (5)
  - ANOREXIA [None]
  - ARTHRALGIA [None]
  - FATIGUE [None]
  - MYALGIA [None]
  - PYREXIA [None]
